FAERS Safety Report 7001964-2 (Version None)
Quarter: 2010Q3

REPORT INFORMATION
  Report Type: 
  Country: None (occurrence: None)
  Receive Date: 20100920
  Receipt Date: 20100914
  Transmission Date: 20110219
  Serious: Yes (Death, Hospitalization)
  Sender: FDA-Public Use
  Company Number: A0881706A

PATIENT
  Sex: Male
  Weight: 22 kg

DRUGS (1)
  1. SERETIDE [Suspect]
     Indication: LUNG DISORDER
     Dosage: 2PUFF TWICE PER DAY
     Route: 055
     Dates: start: 20100401, end: 20100601

REACTIONS (1)
  - PNEUMONIA BACTERIAL [None]
